FAERS Safety Report 11420142 (Version 6)
Quarter: 2015Q3

REPORT INFORMATION
  Report Type: Spontaneous
  Country: US (occurrence: US)
  Receive Date: 20150826
  Receipt Date: 20150921
  Transmission Date: 20151125
  Serious: Yes (Hospitalization, Other)
  Sender: FDA-Public Use
  Company Number: US-GLAXOSMITHKLINE-US2015GSK120544

PATIENT
  Age: 49 Year
  Sex: Male
  Weight: 87.5 kg

DRUGS (1)
  1. MUPIROCIN CALCIUM CREAM [Suspect]
     Active Substance: MUPIROCIN CALCIUM
     Indication: WOUND TREATMENT
     Dosage: UNK, QD
     Route: 061
     Dates: start: 20150801, end: 20150820

REACTIONS (6)
  - Drug administration error [Unknown]
  - Catheter site infection [Unknown]
  - Peritonitis [Recovered/Resolved]
  - Suspected transmission of an infectious agent via product [Unknown]
  - Catheter site erythema [Unknown]
  - Catheter site inflammation [Unknown]

NARRATIVE: CASE EVENT DATE: 20150801
